FAERS Safety Report 13984403 (Version 2)
Quarter: 2019Q2

REPORT INFORMATION
  Report Type: Report from Study
  Country: US (occurrence: US)
  Receive Date: 20170918
  Receipt Date: 20190419
  Transmission Date: 20190711
  Serious: Yes (Other)
  Sender: FDA-Public Use
  Company Number: US-009507513-1709USA008688

PATIENT
  Age: 58 Year
  Sex: Female

DRUGS (5)
  1. CARBOPLATIN. [Concomitant]
     Active Substance: CARBOPLATIN
  2. PEMBROLIZUMAB. [Suspect]
     Active Substance: PEMBROLIZUMAB
     Indication: NON-SMALL CELL LUNG CANCER
     Dosage: UNK, Q3W
     Route: 042
     Dates: start: 20170727
  3. AMBIEN [Concomitant]
     Active Substance: ZOLPIDEM TARTRATE
  4. XANAX [Concomitant]
     Active Substance: ALPRAZOLAM
  5. SOMA [Concomitant]
     Active Substance: CARISOPRODOL

REACTIONS (11)
  - Stress [Unknown]
  - Urticaria [Not Recovered/Not Resolved]
  - Eye irritation [Unknown]
  - Gastrointestinal pain [Unknown]
  - Cognitive disorder [Unknown]
  - Malignant neoplasm progression [Unknown]
  - Memory impairment [Unknown]
  - Malaise [Unknown]
  - Asthenia [Unknown]
  - Pollakiuria [Unknown]
  - Pain [Unknown]

NARRATIVE: CASE EVENT DATE: 201708
